FAERS Safety Report 4853516-8 (Version None)
Quarter: 2005Q4

REPORT INFORMATION
  Report Type: 
  Country: None (occurrence: None)
  Receive Date: 20051212
  Receipt Date: 20051124
  Transmission Date: 20060501
  Serious: Yes (Other)
  Sender: FDA-Public Use
  Company Number: CA_050608271

PATIENT
  Age: 87 Year
  Sex: Female
  Weight: 54.5 kg

DRUGS (9)
  1. FORTEO [Suspect]
     Indication: OSTEOPOROSIS
     Dosage: 20 UG, DAILY (1/D)
     Dates: start: 20050309
  2. CALCIUM GLUCONATE [Concomitant]
  3. VITAMIN D [Concomitant]
  4. ENTROPHEN (ACETYLSALICYLIC ACID) [Concomitant]
  5. HYDROCHLOROTHIAZIDE [Concomitant]
  6. GLUCOSAMINE W/CHONDROITIN (GLUCOSAMINE W/CHONDROITIN) [Concomitant]
  7. NORVASC [Concomitant]
  8. FORTEO PEN (FORTEO PEN) PEN, DISPOSABLE [Concomitant]
  9. INHIBACE [Concomitant]

REACTIONS (4)
  - ARTHRALGIA [None]
  - BACK PAIN [None]
  - EPISTAXIS [None]
  - HYPERTENSIVE CRISIS [None]
